FAERS Safety Report 11990133 (Version 1)
Quarter: 2016Q1

REPORT INFORMATION
  Report Type: Spontaneous
  Country: US (occurrence: US)
  Receive Date: 20160202
  Receipt Date: 20160202
  Transmission Date: 20160526
  Serious: No
  Sender: FDA-Public Use
  Company Number: US-ROCHE-1148896

PATIENT
  Age: 11 Year
  Sex: Female

DRUGS (3)
  1. NUTROPIN AQ [Suspect]
     Active Substance: SOMATROPIN
     Indication: NOONAN SYNDROME
     Route: 058
     Dates: start: 201201
  2. NUTROPIN AQ [Suspect]
     Active Substance: SOMATROPIN
     Dosage: 5 DAYS A WEEK ON M,T,W,TH,F
     Route: 065
     Dates: start: 201406
  3. NUTROPIN AQ [Suspect]
     Active Substance: SOMATROPIN
     Indication: MULTIPLE CONGENITAL ABNORMALITIES
     Dosage: EVERY MON-FRI
     Route: 058
     Dates: start: 20120203

REACTIONS (4)
  - Sleep apnoea syndrome [Recovered/Resolved]
  - Pyrexia [Not Recovered/Not Resolved]
  - Injection site pain [Recovered/Resolved]
  - Drug dose omission [Unknown]

NARRATIVE: CASE EVENT DATE: 20150112
